FAERS Safety Report 11297776 (Version 1)
Quarter: 2015Q3

REPORT INFORMATION
  Report Type: Spontaneous
  Country: US (occurrence: US)
  Receive Date: 20150722
  Receipt Date: 20150722
  Transmission Date: 20151125
  Serious: No
  Sender: FDA-Public Use
  Company Number: US-ELI_LILLY_AND_COMPANY-US200911002559

PATIENT
  Age: 43 Year
  Sex: Male

DRUGS (1)
  1. HUMATROPE [Suspect]
     Active Substance: SOMATROPIN
     Indication: MUSCLE SPASMS
     Dosage: 0.2 MG, DAILY (1/D)
     Dates: start: 200908

REACTIONS (8)
  - Alopecia [Recovered/Resolved]
  - Asthenia [Recovered/Resolved]
  - Lethargy [Recovered/Resolved]
  - Depression [Recovered/Resolved]
  - Drug dose omission [Recovered/Resolved]
  - Blood cholesterol increased [Unknown]
  - Insulin-like growth factor increased [Unknown]
  - Visual acuity reduced [Recovered/Resolved]

NARRATIVE: CASE EVENT DATE: 200909
